FAERS Safety Report 21905023 (Version 1)
Quarter: 2023Q1

REPORT INFORMATION
  Report Type: Spontaneous
  Country: JP (occurrence: JP)
  Receive Date: 20230124
  Receipt Date: 20230124
  Transmission Date: 20230418
  Serious: Yes (Other)
  Sender: FDA-Public Use
  Company Number: JP-PFIZER INC-PV202300013232

PATIENT
  Age: 7 Decade
  Sex: Female
  Weight: 38.9 kg

DRUGS (1)
  1. BEVACIZUMAB [Suspect]
     Active Substance: BEVACIZUMAB
     Indication: Ovarian epithelial cancer
     Dosage: 410 MG (TOTAL OF 9 TIMES)

REACTIONS (3)
  - Renal impairment [Recovering/Resolving]
  - Hypertension [Recovering/Resolving]
  - Off label use [Unknown]
